FAERS Safety Report 6894026 (Version 4)
Quarter: 2014Q1

REPORT INFORMATION
  Report Type: Spontaneous
  Country: JP (occurrence: JP)
  Receive Date: 20090127
  Receipt Date: 20140327
  Transmission Date: 20141002
  Serious: Yes (Death, Hospitalization, Other)
  Sender: FDA-Public Use
  Company Number: PHHO2007JP10165

PATIENT
  Age: 50 Year
  Sex: Female
  Weight: 43 kg

DRUGS (9)
  1. NEORAL [Suspect]
     Indication: LIVER TRANSPLANT
     Dosage: 15 MG, DAY
     Route: 048
     Dates: start: 20070215, end: 20081219
  2. MYCOPHENOLATE MOFETIL [Suspect]
     Dosage: 1000 MG, PER DAY
  3. TACROLIMUS [Concomitant]
     Indication: LIVER TRANSPLANT REJECTION
  4. RIBAVIRIN [Concomitant]
  5. CELLCEPT [Concomitant]
     Indication: LIVER TRANSPLANT
     Dosage: 1500 MG, DAY
     Route: 048
     Dates: start: 20070314, end: 20090106
  6. INTERFERON [Concomitant]
     Indication: LIVER TRANSPLANT REJECTION
  7. RAPAMYCIN [Concomitant]
     Indication: LIVER TRANSPLANT REJECTION
  8. CORTICOSTEROIDS [Concomitant]
     Indication: LIVER TRANSPLANT REJECTION
  9. ANTIVIRALS [Concomitant]

REACTIONS (7)
  - Liver transplant rejection [Fatal]
  - Human T-cell lymphotropic virus type I infection [Fatal]
  - Meningism [Fatal]
  - Hepatitis C [Fatal]
  - Pulmonary fibrosis [Fatal]
  - Hepatic function abnormal [Fatal]
  - Bile duct stenosis [Not Recovered/Not Resolved]
